FAERS Safety Report 9382249 (Version 2)
Quarter: 2013Q3

REPORT INFORMATION
  Report Type: Spontaneous
  Country: US (occurrence: US)
  Receive Date: 20130703
  Receipt Date: 20130919
  Transmission Date: 20140515
  Serious: Yes (Other)
  Sender: FDA-Public Use
  Company Number: US-JNJFOC-20130617678

PATIENT
  Sex: Male

DRUGS (11)
  1. STELARA [Suspect]
     Indication: PSORIASIS
     Dosage: INITIATED ABOUT 2 YEARS AGO
     Route: 058
     Dates: start: 20101118
  2. KLONOPIN [Concomitant]
     Indication: MENTAL DISORDER
     Route: 048
  3. KLONOPIN [Concomitant]
     Indication: CONVULSION
     Route: 048
  4. TEGRETOL [Concomitant]
     Indication: MENTAL DISORDER
     Route: 048
  5. TEGRETOL [Concomitant]
     Indication: CONVULSION
     Route: 048
  6. DEPAKOTE [Concomitant]
     Indication: MENTAL DISORDER
     Route: 048
  7. DEPAKOTE [Concomitant]
     Indication: CONVULSION
     Route: 048
  8. SEROQUEL [Concomitant]
     Indication: MENTAL DISORDER
     Route: 048
  9. SEROQUEL [Concomitant]
     Indication: CONVULSION
     Route: 048
  10. PAXIL [Concomitant]
     Indication: MENTAL DISORDER
     Route: 048
  11. PAXIL [Concomitant]
     Indication: CONVULSION
     Route: 048

REACTIONS (1)
  - Convulsion [Recovered/Resolved]
